FAERS Safety Report 22218973 (Version 2)
Quarter: 2023Q2

REPORT INFORMATION
  Report Type: Spontaneous
  Country: FR (occurrence: FR)
  Receive Date: 20230417
  Receipt Date: 20230428
  Transmission Date: 20230721
  Serious: Yes (Hospitalization, Other)
  Sender: FDA-Public Use
  Company Number: FR-BIOVITRUM-2023-FR-009294

PATIENT
  Age: 6 Year

DRUGS (4)
  1. KINERET [Suspect]
     Active Substance: ANAKINRA
     Indication: Still^s disease
     Dosage: EVERY OTHER DAY FOR 4 WEEKS, THEN EVERY THIRD DAY FOR 4 WEEKS, THEN EVERY FOURTH DAY.
     Dates: start: 20221024, end: 20230323
  2. FLUTICASONE PROPIONATE [Concomitant]
     Active Substance: FLUTICASONE PROPIONATE
     Indication: Product used for unknown indication
  3. DESLORATADINE [Concomitant]
     Active Substance: DESLORATADINE
     Indication: Product used for unknown indication
  4. CORTISONE [Concomitant]
     Active Substance: CORTISONE
     Indication: Product used for unknown indication

REACTIONS (10)
  - Urticaria [Unknown]
  - Respiratory distress [Unknown]
  - Rash papular [Recovered/Resolved]
  - Asthma [Unknown]
  - Chest pain [Unknown]
  - Cough [Unknown]
  - Vomiting [Unknown]
  - Injection site hypersensitivity [Unknown]
  - Oedema [Unknown]
  - Eczema [Unknown]

NARRATIVE: CASE EVENT DATE: 20230319
